FAERS Safety Report 21789299 (Version 1)
Quarter: 2022Q4

REPORT INFORMATION
  Report Type: Spontaneous
  Country: US (occurrence: None)
  Receive Date: 20221227
  Receipt Date: 20221227
  Transmission Date: 20230113
  Serious: No
  Sender: FDA-Public Use
  Company Number: None

PATIENT
  Sex: Male
  Weight: 97.47 kg

DRUGS (3)
  1. LENVIMA [Suspect]
     Active Substance: LENVATINIB
     Indication: Malignant neoplasm of renal pelvis
     Dosage: FREQUENCY : DAILY;?
     Route: 048
     Dates: start: 20221026
  2. KEYTRUDA [Concomitant]
     Active Substance: PEMBROLIZUMAB
  3. LOSARTAN [Concomitant]
     Active Substance: LOSARTAN

REACTIONS (2)
  - Arthralgia [None]
  - Dysphonia [None]
